FAERS Safety Report 12416672 (Version 1)
Quarter: 2016Q2

REPORT INFORMATION
  Report Type: Spontaneous
  Country: CN (occurrence: CN)
  Receive Date: 20160530
  Receipt Date: 20160530
  Transmission Date: 20160815
  Serious: Yes (Other)
  Sender: FDA-Public Use
  Company Number: CN-JNJFOC-20140619831

PATIENT

DRUGS (2)
  1. PAROXETINE. [Suspect]
     Active Substance: PAROXETINE
     Indication: DEPRESSION
     Route: 048
  2. RISPERIDONE. [Suspect]
     Active Substance: RISPERIDONE
     Indication: DEPRESSION
     Route: 048

REACTIONS (16)
  - Constipation [Unknown]
  - Electrocardiogram abnormal [Unknown]
  - Hypophagia [Unknown]
  - Extrapyramidal disorder [Unknown]
  - Blood count abnormal [Unknown]
  - Akathisia [Unknown]
  - Headache [Unknown]
  - Agitation [Unknown]
  - Dry mouth [Unknown]
  - Tremor [Unknown]
  - Hepatic function abnormal [Unknown]
  - Body mass index increased [Unknown]
  - Drug ineffective for unapproved indication [Unknown]
  - Renal impairment [Unknown]
  - Phobia [Unknown]
  - Dizziness [Unknown]
